FAERS Safety Report 21052914 (Version 3)
Quarter: 2022Q3

REPORT INFORMATION
  Report Type: Report from Study
  Country: AU (occurrence: AU)
  Receive Date: 20220707
  Receipt Date: 20220721
  Transmission Date: 20221027
  Serious: Yes (Death)
  Sender: FDA-Public Use
  Company Number: AU-NOVARTISPH-NVSC2022AU154320

PATIENT
  Age: 77 Year
  Sex: Male

DRUGS (3)
  1. SANDOSTATIN LAR DEPOT [Suspect]
     Active Substance: OCTREOTIDE ACETATE
     Indication: Neuroendocrine tumour
     Dosage: 30 MG, Q4W
     Route: 030
  2. SANDOSTATIN LAR DEPOT [Suspect]
     Active Substance: OCTREOTIDE ACETATE
  3. SANDOSTATIN LAR DEPOT [Suspect]
     Active Substance: OCTREOTIDE ACETATE

REACTIONS (3)
  - Sudden cardiac death [Fatal]
  - Chest pain [Fatal]
  - Neuroendocrine tumour [Fatal]

NARRATIVE: CASE EVENT DATE: 20220628
